FAERS Safety Report 4696143-8 (Version None)
Quarter: 2005Q2

REPORT INFORMATION
  Report Type: 
  Country: None (occurrence: None)
  Receive Date: 20050620
  Receipt Date: 20050607
  Transmission Date: 20051028
  Serious: Yes (Death)
  Sender: FDA-Public Use
  Company Number: 2005085001

PATIENT
  Age: 72 Year
  Sex: Male

DRUGS (4)
  1. SULPERAZONE (SULBACTAM, CEFOPERAZONE) [Suspect]
     Indication: LOWER RESPIRATORY TRACT INFECTION
     Dosage: 3 GRAM (1.5 GRAM, 2 IN 1 D), INTRAVENOUS
     Route: 042
     Dates: start: 20050512
  2. MERONEM (MEROPENEM) [Suspect]
     Indication: ILL-DEFINED DISORDER
     Dosage: 1.5 GRAM (500 MG, 3 IN 1 D)
     Dates: start: 20050512
  3. COZAAR [Concomitant]
  4. GLYBURIDE [Concomitant]

REACTIONS (2)
  - RESPIRATORY ARREST [None]
  - SEPSIS [None]
